FAERS Safety Report 8556839-4 (Version None)
Quarter: 2012Q3

REPORT INFORMATION
  Report Type: 
  Country: None (occurrence: None)
  Receive Date: 20120726
  Receipt Date: 20120726
  Transmission Date: 20120928
  Serious: Yes (Hospitalization)
  Sender: FDA-Public Use
  Company Number: None

PATIENT
  Age: 79 Year
  Sex: Male
  Weight: 207 kg

DRUGS (1)
  1. DABIGATRAN 150 MG BOEHRINGER INGELHEIM [Suspect]
     Indication: ATRIAL FIBRILLATION
     Dosage: 150 MG BID  PO
     Route: 048
     Dates: start: 20120521, end: 20120722

REACTIONS (1)
  - LOWER GASTROINTESTINAL HAEMORRHAGE [None]
